FAERS Safety Report 25858475 (Version 1)
Quarter: 2025Q3

REPORT INFORMATION
  Report Type: Spontaneous
  Country: EU (occurrence: EU)
  Receive Date: 20250929
  Receipt Date: 20250929
  Transmission Date: 20251021
  Serious: Yes (Other)
  Sender: BAYER HEALTHCARE PHARMACEUTICALS INC.
  Company Number: None

PATIENT
  Age: 17 Year
  Sex: Female
  Weight: 58 kg

DRUGS (1)
  1. MIRENA [Suspect]
     Active Substance: LEVONORGESTREL
     Dosage: 20?G/DAY
     Route: 015

REACTIONS (2)
  - Abdominal pain lower [Unknown]
  - Endometriosis [Recovered/Resolved with Sequelae]

NARRATIVE: CASE EVENT DATE: 20230601
